FAERS Safety Report 21819128 (Version 1)
Quarter: 2023Q1

REPORT INFORMATION
  Report Type: Spontaneous
  Country: US (occurrence: None)
  Receive Date: 20230104
  Receipt Date: 20230104
  Transmission Date: 20230418
  Serious: Yes (Other)
  Sender: FDA-Public Use
  Company Number: None

PATIENT
  Age: 43 Year
  Sex: Male
  Weight: 102.06 kg

DRUGS (6)
  1. FARXIGA [Suspect]
     Active Substance: DAPAGLIFLOZIN PROPANEDIOL
     Dosage: FREQUENCY : DAILY;?
     Route: 048
     Dates: start: 20210601, end: 20210611
  2. BACLOFEN [Concomitant]
     Active Substance: BACLOFEN
  3. LEVOMEFOLATE CALCIUM [Concomitant]
     Active Substance: LEVOMEFOLATE CALCIUM
  4. AMLODIPINE-BENAZPRIL [Concomitant]
  5. VITAMIN D3 [Concomitant]
     Active Substance: CHOLECALCIFEROL
  6. FISH OIL [Suspect]
     Active Substance: FISH OIL

REACTIONS (10)
  - Fungal infection [None]
  - Urinary tract infection [None]
  - Male reproductive tract disorder [None]
  - Genital pain [None]
  - Urethritis noninfective [None]
  - Dysuria [None]
  - Erectile dysfunction [None]
  - Spermatozoa abnormal [None]
  - Suspected product contamination [None]
  - Drug interaction [None]

NARRATIVE: CASE EVENT DATE: 20210602
